FAERS Safety Report 20450533 (Version 1)
Quarter: 2022Q1

REPORT INFORMATION
  Report Type: Spontaneous
  Country: US (occurrence: None)
  Receive Date: 20220209
  Receipt Date: 20220209
  Transmission Date: 20220423
  Serious: Yes (Hospitalization)
  Sender: FDA-Public Use
  Company Number: None

PATIENT
  Sex: Female

DRUGS (4)
  1. GLATIRAMER ACETATE [Suspect]
     Active Substance: GLATIRAMER ACETATE
     Indication: Multiple sclerosis
     Dosage: INJECT 20 MG UNDER THE SKIN (SUBUTANEOUS INJECTION INJECTION) EVERY DAY
     Route: 058
  2. COPAXONE [Concomitant]
     Active Substance: GLATIRAMER ACETATE
  3. DILTIAZEM CAP [Concomitant]
  4. FLUTICASONE [Concomitant]
     Active Substance: FLUTICASONE

REACTIONS (5)
  - Fall [None]
  - Head injury [None]
  - Skull fracture [None]
  - Seizure [None]
  - Cerebral haemorrhage [None]
